FAERS Safety Report 6891403-4 (Version None)
Quarter: 2010Q3

REPORT INFORMATION
  Report Type: 
  Country: None (occurrence: None)
  Receive Date: 20100731
  Receipt Date: 20061002
  Transmission Date: 20110219
  Serious: No
  Sender: FDA-Public Use
  Company Number: US-PFIZER INC-2006091735

PATIENT
  Sex: Male

DRUGS (1)
  1. DEPO-MEDROL [Suspect]
     Indication: SURGERY
     Route: 008

REACTIONS (3)
  - BACK PAIN [None]
  - FEELING HOT [None]
  - HYPOAESTHESIA [None]
